FAERS Safety Report 20977073 (Version 1)
Quarter: 2022Q2

REPORT INFORMATION
  Report Type: Spontaneous
  Country: US (occurrence: US)
  Receive Date: 20220617
  Receipt Date: 20220617
  Transmission Date: 20220721
  Serious: No
  Sender: FDA-Public Use
  Company Number: US-LANNETT COMPANY, INC.-US-2021LAN000230

PATIENT
  Sex: Male

DRUGS (1)
  1. CETIRIZINE HYDROCHLORIDE [Suspect]
     Active Substance: CETIRIZINE HYDROCHLORIDE
     Dosage: UNK
     Route: 065

REACTIONS (11)
  - Fabry^s disease [Unknown]
  - Abdominal discomfort [Unknown]
  - Glucose urine present [Unknown]
  - Wheezing [Unknown]
  - Drainage [Unknown]
  - Hypermetropia [Unknown]
  - Colour blindness acquired [Unknown]
  - Vitreous floaters [Unknown]
  - Thirst [Unknown]
  - Fatigue [Unknown]
  - Drug effect less than expected [Unknown]
